FAERS Safety Report 8297103-0 (Version None)
Quarter: 2012Q2

REPORT INFORMATION
  Report Type: 
  Country: None (occurrence: None)
  Receive Date: 20120417
  Receipt Date: 20120417
  Transmission Date: 20120825
  Serious: Yes (Other)
  Sender: FDA-Public Use
  Company Number: None

PATIENT
  Sex: Female

DRUGS (4)
  1. SERTRALINE HYDROCHLORIDE [Suspect]
     Indication: DEPRESSION
     Dates: start: 20070101
  2. SERTRALINE HYDROCHLORIDE [Suspect]
     Indication: ANXIETY
     Dates: start: 20070101
  3. CITALOPRAM HYDROBROMIDE [Suspect]
  4. LEXAPRO [Concomitant]

REACTIONS (2)
  - MALAISE [None]
  - ANXIETY [None]
